FAERS Safety Report 5768177-3 (Version None)
Quarter: 2008Q2

REPORT INFORMATION
  Report Type: 
  Country: None (occurrence: None)
  Receive Date: 20080609
  Receipt Date: 20080527
  Transmission Date: 20081010
  Serious: Yes (Death, Hospitalization)
  Sender: FDA-Public Use
  Company Number: 2008-01785

PATIENT
  Age: 74 Year
  Sex: Male
  Weight: 72 kg

DRUGS (3)
  1. VELCADE [Suspect]
     Indication: ACUTE MYELOID LEUKAEMIA
     Dosage: 1.8MG, INTRAVENOUS
     Route: 042
     Dates: start: 20080407, end: 20080512
  2. VELCADE [Suspect]
  3. TIPIFARNIB(TIPIFARNIB) ORAL DRUG UNSPECIFIED FORM [Suspect]
     Indication: ACUTE MYELOID LEUKAEMIA
     Dosage: 600 MG, ORAL
     Route: 048
     Dates: start: 20080407, end: 20080515

REACTIONS (7)
  - ACUTE MYELOID LEUKAEMIA [None]
  - FLUID RETENTION [None]
  - GASTROINTESTINAL HAEMORRHAGE [None]
  - HEPATOTOXICITY [None]
  - MALIGNANT NEOPLASM PROGRESSION [None]
  - PYREXIA [None]
  - SHOCK [None]
